FAERS Safety Report 5733168-5 (Version None)
Quarter: 2008Q2

REPORT INFORMATION
  Report Type: 
  Country: None (occurrence: None)
  Receive Date: 20080509
  Receipt Date: 20080428
  Transmission Date: 20081010
  Serious: Yes (Congenital Anomaly)
  Sender: FDA-Public Use
  Company Number: GB-WYE-G01476208

PATIENT
  Sex: Male

DRUGS (7)
  1. VENLAFAXINE HYDROCHLORIDE [Suspect]
     Indication: DEPRESSION
     Dosage: 37.5MG, FREQUENCY UNKNOWN
     Route: 064
     Dates: start: 20060201, end: 20060201
  2. VENLAFAXINE HYDROCHLORIDE [Suspect]
     Dosage: 75MG DAILY
     Route: 064
     Dates: start: 20060201, end: 20060301
  3. VENLAFAXINE HYDROCHLORIDE [Suspect]
     Dosage: 150MG, FREQUENCY UNKNOWN
     Route: 064
     Dates: start: 20060301
  4. AMOXICILLIN [Concomitant]
     Route: 064
  5. CEPHALEXIN [Concomitant]
     Route: 064
  6. SERTRALINE [Suspect]
     Indication: DEPRESSION
     Dosage: 100MG, FREQUENCY UNKNOWN
     Route: 064
     Dates: start: 20041109, end: 20050901
  7. SERTRALINE [Suspect]
     Dosage: 100MG, FREQUENCY UNKNOWN
     Route: 064
     Dates: start: 20051201, end: 20060201

REACTIONS (4)
  - ABNORMAL PALMAR/PLANTAR CREASES [None]
  - EAR MALFORMATION [None]
  - FOETAL DAMAGE [None]
  - HEAD DEFORMITY [None]
